FAERS Safety Report 6527057-6 (Version None)
Quarter: 2010Q1

REPORT INFORMATION
  Report Type: 
  Country: None (occurrence: None)
  Receive Date: 20100105
  Receipt Date: 20091223
  Transmission Date: 20100710
  Serious: Yes (Hospitalization)
  Sender: FDA-Public Use
  Company Number: BR-SANOFI-AVENTIS-2009SA011480

PATIENT
  Sex: Female

DRUGS (2)
  1. DOLANTINA [Suspect]
     Indication: DRUG USE FOR UNKNOWN INDICATION
     Route: 065
  2. DOLANTINA [Suspect]
     Indication: OVERDOSE
     Route: 065

REACTIONS (2)
  - AMNESIA [None]
  - OVERDOSE [None]
